FAERS Safety Report 6543895-8 (Version None)
Quarter: 2010Q1

REPORT INFORMATION
  Report Type: 
  Country: None (occurrence: None)
  Receive Date: 20100119
  Receipt Date: 20100119
  Transmission Date: 20100710
  Serious: No
  Sender: FDA-Public Use
  Company Number: None

PATIENT
  Age: 30 Year
  Sex: Female
  Weight: 74.8435 kg

DRUGS (1)
  1. ELECTRONIC CIGARETTE N/A SMOKE ASSIST [Suspect]
     Indication: SMOKING CESSATION THERAPY
     Dosage: 1 PUFF PRN INHAL
     Route: 055
     Dates: start: 20091205, end: 20091212

REACTIONS (1)
  - PRODUCT LABEL ISSUE [None]
